FAERS Safety Report 4755302-6 (Version None)
Quarter: 2005Q3

REPORT INFORMATION
  Report Type: 
  Country: None (occurrence: None)
  Receive Date: 20050826
  Receipt Date: 20041105
  Transmission Date: 20060218
  Serious: Yes (Death)
  Sender: FDA-Public Use
  Company Number: KII-2002-0002298

PATIENT
  Sex: Female

DRUGS (1)
  1. OXYCONTIN [Suspect]
     Dosage: 80 MG, ORAL
     Route: 048

REACTIONS (2)
  - DRUG ABUSER [None]
  - OVERDOSE [None]
